FAERS Safety Report 19469637 (Version 1)
Quarter: 2021Q2

REPORT INFORMATION
  Report Type: Spontaneous
  Country: US (occurrence: US)
  Receive Date: 20210629
  Receipt Date: 20210629
  Transmission Date: 20210717
  Serious: Yes (Other)
  Sender: FDA-Public Use
  Company Number: US-HIKMA PHARMACEUTICALS USA INC.-US-H14001-21-54716

PATIENT
  Age: 72 Year
  Sex: Female

DRUGS (20)
  1. DOXORUBICIN [Suspect]
     Active Substance: DOXORUBICIN
     Indication: TRIPLE HIT LYMPHOMA
     Dosage: UNKNOWN
     Route: 065
  2. RITUXIMAB. [Suspect]
     Active Substance: RITUXIMAB
     Indication: TRIPLE HIT LYMPHOMA
  3. LIPITOR [Concomitant]
     Active Substance: ATORVASTATIN CALCIUM
     Indication: PRODUCT USED FOR UNKNOWN INDICATION
     Dosage: UNKNOWN
     Route: 065
  4. VENETOCLAX. [Concomitant]
     Active Substance: VENETOCLAX
     Indication: B-CELL LYMPHOMA
     Dosage: 600 MG DAILY FOR 5 DAYS DURING CYCLES 2, 3 AND 4
     Route: 065
  5. ETOPOSIDE. [Suspect]
     Active Substance: ETOPOSIDE
     Indication: B-CELL LYMPHOMA
     Dosage: UNKNOWN
     Route: 065
  6. METHOTREXATE. [Suspect]
     Active Substance: METHOTREXATE
     Indication: TRIPLE HIT LYMPHOMA
  7. VINCRISTINE [Suspect]
     Active Substance: VINCRISTINE
     Indication: B-CELL LYMPHOMA
     Dosage: UNKNOWN
     Route: 065
  8. CHOLECALCIFEROL [Concomitant]
     Active Substance: CHOLECALCIFEROL
     Indication: PRODUCT USED FOR UNKNOWN INDICATION
     Dosage: UNKNOWN
     Route: 065
  9. DOXORUBICIN [Suspect]
     Active Substance: DOXORUBICIN
     Indication: B-CELL LYMPHOMA
  10. RITUXIMAB. [Suspect]
     Active Substance: RITUXIMAB
     Indication: B-CELL LYMPHOMA
     Dosage: UNKNOWN
     Route: 065
  11. VINCRISTINE [Suspect]
     Active Substance: VINCRISTINE
     Indication: TRIPLE HIT LYMPHOMA
  12. GRANULOCYTE COLONY STIMULATING FACTOR [Concomitant]
     Active Substance: GRANULOCYTE COLONY-STIMULATING FACTOR NOS
     Indication: PRODUCT USED FOR UNKNOWN INDICATION
     Dosage: UNKNOWN
     Route: 065
  13. METHOTREXATE. [Suspect]
     Active Substance: METHOTREXATE
     Indication: B-CELL LYMPHOMA
     Dosage: UNKNOWN
     Route: 037
  14. VENETOCLAX. [Concomitant]
     Active Substance: VENETOCLAX
     Indication: TRIPLE HIT LYMPHOMA
  15. SALBUTAMOL [Concomitant]
     Active Substance: ALBUTEROL
     Indication: ASTHMA
     Dosage: INHALER
     Route: 055
  16. CYCLOPHOSPHAMIDE. [Suspect]
     Active Substance: CYCLOPHOSPHAMIDE
     Indication: B-CELL LYMPHOMA
     Dosage: UNKNOWN
     Route: 065
  17. PREDNISONE. [Suspect]
     Active Substance: PREDNISONE
     Indication: B-CELL LYMPHOMA
  18. CYCLOPHOSPHAMIDE. [Suspect]
     Active Substance: CYCLOPHOSPHAMIDE
     Indication: TRIPLE HIT LYMPHOMA
  19. ETOPOSIDE. [Suspect]
     Active Substance: ETOPOSIDE
     Indication: TRIPLE HIT LYMPHOMA
  20. PREDNISONE. [Suspect]
     Active Substance: PREDNISONE
     Indication: TRIPLE HIT LYMPHOMA
     Dosage: UNKNOWN
     Route: 065

REACTIONS (14)
  - Peripheral motor neuropathy [Not Recovered/Not Resolved]
  - Nausea [Unknown]
  - Neutrophil count decreased [Unknown]
  - Constipation [Unknown]
  - Vocal cord paralysis [Recovering/Resolving]
  - Alopecia [Not Recovered/Not Resolved]
  - Diarrhoea [Unknown]
  - Taste disorder [Unknown]
  - Decreased appetite [Unknown]
  - Dysphonia [Recovering/Resolving]
  - Gastrooesophageal reflux disease [Unknown]
  - Paraesthesia [Not Recovered/Not Resolved]
  - Oral pain [Unknown]
  - Neuropathy peripheral [Not Recovered/Not Resolved]
